FAERS Safety Report 16568927 (Version 1)
Quarter: 2019Q3

REPORT INFORMATION
  Report Type: Spontaneous
  Country: DE (occurrence: DE)
  Receive Date: 20190713
  Receipt Date: 20190713
  Transmission Date: 20191004
  Serious: Yes (Hospitalization, Other)
  Sender: FDA-Public Use
  Company Number: DE-TEVA-2019-DE-1076064

PATIENT
  Age: 64 Year
  Sex: Male
  Weight: 79.5 kg

DRUGS (14)
  1. CYCLOPHOSPHAMID [Suspect]
     Active Substance: CYCLOPHOSPHAMIDE
     Dosage: 750 MG / M?, LAST DOSE 05.02.2018,
     Route: 042
  2. FILGRASTIM [Suspect]
     Active Substance: FILGRASTIM
     Route: 058
  3. PARACETAMOL [Concomitant]
     Active Substance: ACETAMINOPHEN
     Dosage: 2 G, AM 11.02.2018,
     Route: 048
  4. ACICLOVIR [Concomitant]
     Active Substance: ACYCLOVIR
     Dosage: 400 MG, 1-0-1,
     Route: 048
  5. FUROSEMID [Concomitant]
     Active Substance: FUROSEMIDE
     Dosage: 40 MG, 1-0-0,
     Route: 048
  6. ALPHA-LIPOGAMMA 600MG [Concomitant]
     Dosage: 600 MG, 0-1-0,
     Route: 048
  7. DOXORUBICIN [Suspect]
     Active Substance: DOXORUBICIN
     Dosage: 50 MG / M?, LAST DOSE 05.02.2018, SOLUTION FOR INJECTION / INFUSION
     Route: 042
  8. PANTOPRAZOL [Concomitant]
     Active Substance: PANTOPRAZOLE SODIUM
     Dosage: 40 MG, 1-0-0,
     Route: 048
  9. RITUXIMAB. [Suspect]
     Active Substance: RITUXIMAB
  10. BENZYDAMIN [Concomitant]
     Dosage: 1.5 MG / ML, 1-1-1-1, SOLUTION
     Route: 048
  11. COTRIM FORTE-RATIOPHARM 960MG [Concomitant]
     Dosage: 800, 160 MG, 1-0-0; 3X / WEEKLY, TABLETS
     Route: 048
  12. VINCRISTIN [Suspect]
     Active Substance: VINCRISTINE
     Dosage: 2 MG, ONCE ON 01.12.2017,
     Route: 042
  13. TADALAFIL. [Concomitant]
     Active Substance: TADALAFIL
     Dosage: 20 MG, 0-0-2,
     Route: 048
  14. SPIRONOLACTON [Concomitant]
     Active Substance: SPIRONOLACTONE
     Dosage: 50 MG, 1-0-0,
     Route: 048

REACTIONS (6)
  - Diarrhoea [Unknown]
  - Pyrexia [Unknown]
  - Erysipelas [Unknown]
  - Dry mouth [Unknown]
  - Paraesthesia [Unknown]
  - Abdominal distension [Unknown]
